FAERS Safety Report 20900586 (Version 2)
Quarter: 2022Q2

REPORT INFORMATION
  Report Type: Spontaneous
  Country: TR (occurrence: TR)
  Receive Date: 20220601
  Receipt Date: 20220615
  Transmission Date: 20220720
  Serious: Yes (Congenital Anomaly, Other)
  Sender: FDA-Public Use
  Company Number: TR-NOVARTISPH-NVSC2022TR125185

PATIENT
  Sex: Female
  Weight: 3.1 kg

DRUGS (3)
  1. ONDANSETRON [Suspect]
     Active Substance: ONDANSETRON
     Indication: Foetal exposure during pregnancy
     Dosage: MATERNAL EXPSOURE DURING PREGNANCY: 8 MG, QD
     Route: 064
  2. FAVIPIRAVIR [Suspect]
     Active Substance: FAVIPIRAVIR
     Indication: Foetal exposure during pregnancy
     Dosage: MATERNAL EXPSOURE DURING PREGNANCY: LOADING DOSE (2X1600 MG) 3200 MG FOR 24 HOURS
     Route: 064
  3. FAVIPIRAVIR [Suspect]
     Active Substance: FAVIPIRAVIR
     Dosage: MATERNAL EXPOUSRE DURING PREGNANCY: MAINTENANCE DOSE (2X600 MG) 1200 MG FOR 4 DAYS
     Route: 064

REACTIONS (2)
  - Congenital pyelocaliectasis [Recovered/Resolved]
  - Foetal exposure during pregnancy [Unknown]
